FAERS Safety Report 9664814 (Version 2)
Quarter: 2014Q1

REPORT INFORMATION
  Report Type: Spontaneous
  Country: GB (occurrence: None)
  Receive Date: 20131031
  Receipt Date: 20140129
  Transmission Date: 20141002
  Serious: Yes (Life-Threatening, Hospitalization, Disabling)
  Sender: FDA-Public Use
  Company Number: AUR-APL-2013-08798

PATIENT
  Age: 27 Year
  Sex: Male

DRUGS (2)
  1. QUETIAPINE [Suspect]
     Indication: DEPRESSION
     Route: 048
     Dates: start: 20110516, end: 20130930
  2. VENLAFAXINE [Suspect]
     Indication: DEPRESSION
     Route: 048
     Dates: start: 20121121

REACTIONS (5)
  - Dyspnoea [None]
  - Cardiomegaly [None]
  - Cardiomyopathy [None]
  - Local swelling [None]
  - Congestive cardiomyopathy [None]
